FAERS Safety Report 8429608-3 (Version None)
Quarter: 2012Q2

REPORT INFORMATION
  Report Type: 
  Country: None (occurrence: None)
  Receive Date: 20120323
  Receipt Date: 20110421
  Transmission Date: 20120825
  Serious: Yes (Hospitalization, Other)
  Sender: FDA-Public Use
  Company Number: 163-21880-11043032

PATIENT
  Age: 80 Year
  Sex: Female

DRUGS (2)
  1. REVLIMID [Suspect]
     Indication: MULTIPLE MYELOMA
     Dosage: 10 MG, DAILY X 3 WEEKS Q 28 DAYS, PO
     Route: 048
     Dates: start: 20101110
  2. REVLIMID [Suspect]

REACTIONS (1)
  - GOUT [None]
